FAERS Safety Report 7626977-9 (Version None)
Quarter: 2011Q3

REPORT INFORMATION
  Report Type: 
  Country: None (occurrence: None)
  Receive Date: 20110714
  Receipt Date: 20110629
  Transmission Date: 20111222
  Serious: Yes (Hospitalization, Other)
  Sender: FDA-Public Use
  Company Number: 2009S1005435

PATIENT
  Age: 86 Year
  Sex: Female
  Weight: 64.4108 kg

DRUGS (12)
  1. EVISTA [Concomitant]
  2. LORAZEPAM [Concomitant]
  3. STOOL SOFTENER [Concomitant]
  4. DULCOLAX [Concomitant]
  5. METOPROLOL TARTRATE [Concomitant]
  6. SODIUM PHOSPHATE MONOBASIC MONOHYDRATE AND NAPO4 DIBASIC ANHYDROUS [Suspect]
     Indication: COLONOSCOPY
     Dosage: 90 ML;TOTAL;PO
     Route: 048
     Dates: start: 20081006, end: 20081007
  7. SIMVASTATIN [Concomitant]
  8. NEXIUM [Concomitant]
  9. ASPIRIN [Concomitant]
  10. MYLICON [Concomitant]
  11. MOBIC [Concomitant]
  12. VITAMINS /90003601/ [Concomitant]

REACTIONS (9)
  - ACUTE PHOSPHATE NEPHROPATHY [None]
  - PROCTALGIA [None]
  - CARDIAC FAILURE CONGESTIVE [None]
  - RENAL FAILURE CHRONIC [None]
  - ABDOMINAL PAIN [None]
  - RENAL FAILURE ACUTE [None]
  - METABOLIC ACIDOSIS [None]
  - HAEMODIALYSIS [None]
  - ANAEMIA [None]
